FAERS Safety Report 6243701-5 (Version None)
Quarter: 2009Q2

REPORT INFORMATION
  Report Type: 
  Country: None (occurrence: None)
  Receive Date: 20090618
  Receipt Date: 20081021
  Transmission Date: 20091009
  Serious: Yes (Hospitalization)
  Sender: FDA-Public Use
  Company Number: WAES 0810USA04003

PATIENT

DRUGS (1)
  1. COZAAR [Suspect]
     Dosage: 25 MG/DAILY/PO
     Route: 048
     Dates: start: 20080101

REACTIONS (1)
  - ANGIOEDEMA [None]
